FAERS Safety Report 5133970-7 (Version None)
Quarter: 2006Q4

REPORT INFORMATION
  Report Type: 
  Country: None (occurrence: None)
  Receive Date: 20061018
  Receipt Date: 20061006
  Transmission Date: 20070319
  Serious: Yes (Death)
  Sender: FDA-Public Use
  Company Number: 2006122274

PATIENT
  Age: 17 Year
  Sex: Male
  Weight: 54.4316 kg

DRUGS (2)
  1. BENADRYL [Suspect]
     Dosage: ORAL
     Route: 048
  2. DRAMAMINE [Suspect]
     Dosage: 24 TABLETS ONCE, ORAL
     Route: 048
     Dates: start: 20060806, end: 20060807

REACTIONS (1)
  - DROWNING [None]
